FAERS Safety Report 9670240 (Version 1)
Quarter: 2013Q4

REPORT INFORMATION
  Report Type: Spontaneous
  Country: US (occurrence: US)
  Receive Date: 20131105
  Receipt Date: 20131105
  Transmission Date: 20140711
  Serious: Yes (Other)
  Sender: FDA-Public Use
  Company Number: CHPA2013US016469

PATIENT
  Age: 49 Year
  Sex: Female

DRUGS (7)
  1. ASCRIPTIN BUFFERED REG STRENGTH TABLETS [Suspect]
     Indication: PAIN
     Dosage: 5 DF, EVERY TWO HOURS
     Route: 048
     Dates: start: 1993, end: 1997
  2. ASCRIPTIN BUFFERED REG STRENGTH TABLETS [Suspect]
     Indication: HEADACHE
  3. ACETYLSALICYLIC ACID [Suspect]
     Indication: ANTICOAGULANT THERAPY
     Dosage: 5 DF, QD
  4. ACETYLSALICYLIC ACID [Suspect]
     Indication: HEADACHE
  5. ASCRIPTIN BUFFERED MAX STRENGTH CAPLETS [Suspect]
     Indication: HEADACHE
     Dosage: UNK, UNK
     Dates: start: 1997
  6. IBUPROFEN [Suspect]
     Dosage: UNK, UNK
  7. VICODIN [Concomitant]
     Dosage: UNK, UNK

REACTIONS (6)
  - Hypoacusis [Not Recovered/Not Resolved]
  - Dyspnoea [Recovered/Resolved]
  - Tinnitus [Recovered/Resolved]
  - Therapeutic response unexpected [Unknown]
  - Incorrect dose administered [Unknown]
  - Inappropriate schedule of drug administration [Unknown]
